FAERS Safety Report 4588004-X (Version None)
Quarter: 2005Q1

REPORT INFORMATION
  Report Type: 
  Country: None (occurrence: None)
  Receive Date: 20050215
  Receipt Date: 20050202
  Transmission Date: 20050727
  Serious: Yes (Other)
  Sender: FDA-Public Use
  Company Number: 2005024954

PATIENT
  Age: 68 Year
  Sex: Female
  Weight: 95.2554 kg

DRUGS (4)
  1. CELEBREX [Suspect]
     Indication: OSTEOARTHRITIS
     Dosage: 200 MG (200 MG, 1 IN 1 D), ORAL
     Route: 048
     Dates: start: 20000101
  2. ROFECOXIB [Suspect]
     Indication: ILL-DEFINED DISORDER
     Dates: start: 20011001, end: 20040930
  3. ATORVASTATIN (ATORVASTATIN) [Concomitant]
  4. QUININE SULFATE (QUININE SULFATE) [Concomitant]

REACTIONS (12)
  - ARRHYTHMIA [None]
  - ARTHROPATHY [None]
  - BACK DISORDER [None]
  - DIABETES MELLITUS [None]
  - DRUG EFFECT DECREASED [None]
  - FALL [None]
  - IRRITABLE BOWEL SYNDROME [None]
  - MEDICAL DEVICE COMPLICATION [None]
  - OEDEMA PERIPHERAL [None]
  - PERIPHERAL VASCULAR DISORDER [None]
  - SKIN DISCOLOURATION [None]
  - WALKING AID USER [None]
